FAERS Safety Report 15215253 (Version 2)
Quarter: 2018Q4

REPORT INFORMATION
  Report Type: Spontaneous
  Country: ES (occurrence: ES)
  Receive Date: 20180730
  Receipt Date: 20181206
  Transmission Date: 20190204
  Serious: Yes (Hospitalization)
  Sender: FDA-Public Use
  Company Number: ES-PFIZER INC-2018303341

PATIENT
  Age: 64 Year
  Sex: Male

DRUGS (4)
  1. OMEPRAZOL [Suspect]
     Active Substance: OMEPRAZOLE
     Indication: PROPHYLAXIS AGAINST GASTROINTESTINAL ULCER
     Dosage: 40 MG, 1X/DAY
     Route: 042
     Dates: start: 20180122, end: 20180201
  2. TAMIFLU [Suspect]
     Active Substance: OSELTAMIVIR PHOSPHATE
     Indication: H1N1 INFLUENZA
     Dosage: 150 MG, EVERY 12 HOURS
     Route: 048
     Dates: start: 20180123, end: 20180127
  3. CLINDAMYCIN PHOSPHATE. [Suspect]
     Active Substance: CLINDAMYCIN PHOSPHATE
     Indication: PNEUMONIA STREPTOCOCCAL
     Dosage: 600 MG, EVERY 6 HOURS
     Route: 042
     Dates: start: 20180124, end: 20180124
  4. BENZYLPENICILLIN /00000903/ [Suspect]
     Active Substance: PENICILLIN G
     Indication: PNEUMONIA STREPTOCOCCAL
     Dosage: 1 G, EVERY 4 HOURS
     Route: 042
     Dates: start: 20180122, end: 20180201

REACTIONS (1)
  - Toxic skin eruption [Recovered/Resolved]

NARRATIVE: CASE EVENT DATE: 20180126
